FAERS Safety Report 6043179-0 (Version None)
Quarter: 2009Q1

REPORT INFORMATION
  Report Type: 
  Country: None (occurrence: None)
  Receive Date: 20090119
  Receipt Date: 20090107
  Transmission Date: 20090719
  Serious: Yes (Hospitalization)
  Sender: FDA-Public Use
  Company Number: FR-ROCHE-606672

PATIENT
  Sex: Male
  Weight: 60 kg

DRUGS (2)
  1. CAPECITABINE [Suspect]
     Dosage: DATE OF THE LAST DOSE PRIOR TO EVENT : 21 DECEMBER 2007 TOTAL CUMULATIVE DOSE : 6500 MG
     Route: 048
     Dates: start: 20071112
  2. OXALIPLATINE [Suspect]
     Dosage: DATE OF THE LAST DOSE PRIOR TO EVENT : 17 DECEMBER 2007 TOTAL CUMULATIVE DOSE : 530 MG
     Route: 042
     Dates: start: 20071112

REACTIONS (1)
  - ANASTOMOTIC COMPLICATION [None]
